FAERS Safety Report 15452008 (Version 1)
Quarter: 2018Q4

REPORT INFORMATION
  Report Type: Spontaneous
  Country: IT (occurrence: IT)
  Receive Date: 20181001
  Receipt Date: 20181001
  Transmission Date: 20190204
  Serious: Yes (Hospitalization, Other)
  Sender: FDA-Public Use
  Company Number: IT-PFIZER INC-2018391696

PATIENT
  Age: 59 Year
  Sex: Male
  Weight: 87 kg

DRUGS (5)
  1. INCB039110 [Suspect]
     Active Substance: ITACITINIB
     Indication: ACUTE GRAFT VERSUS HOST DISEASE IN SKIN
     Dosage: 100 MG, 1X/DAY
     Route: 048
     Dates: start: 20180723
  2. CICLOSPORIN [Concomitant]
     Active Substance: CYCLOSPORINE
  3. METHYLPREDNISOLONE. [Suspect]
     Active Substance: METHYLPREDNISOLONE
     Indication: ACUTE GRAFT VERSUS HOST DISEASE IN SKIN
     Dosage: 17.5 MG, 1X/DAY
     Route: 048
     Dates: start: 20180723
  4. VALGANCICLOVIR. [Suspect]
     Active Substance: VALGANCICLOVIR
     Route: 065
  5. POSACONAZOLE [Concomitant]
     Active Substance: POSACONAZOLE

REACTIONS (2)
  - Pneumonitis [Recovered/Resolved]
  - Neutropenia [Unknown]

NARRATIVE: CASE EVENT DATE: 20180723
